FAERS Safety Report 21755864 (Version 1)
Quarter: 2022Q4

REPORT INFORMATION
  Report Type: Spontaneous
  Country: JP (occurrence: JP)
  Receive Date: 20221220
  Receipt Date: 20221220
  Transmission Date: 20230112
  Serious: Yes (Death, Life-Threatening, Hospitalization, Other)
  Sender: FDA-Public Use
  Company Number: JP-DSJP-DSJ-2022-140750AA

PATIENT
  Age: 88 Year
  Sex: Female
  Weight: 41.9 kg

DRUGS (15)
  1. EDOXABAN TOSYLATE [Suspect]
     Active Substance: EDOXABAN TOSYLATE
     Indication: Deep vein thrombosis
     Dosage: 30 MG, QD
     Route: 048
     Dates: start: 2019, end: 20201119
  2. NIFEDIPINE [Concomitant]
     Active Substance: NIFEDIPINE
     Indication: Hypertension
     Dosage: 20 MG, QD
     Route: 048
     Dates: start: 2012, end: 20201119
  3. ALFACALCIDOL [Concomitant]
     Active Substance: ALFACALCIDOL
     Indication: Osteoporosis
     Dosage: 0.5 UG, QD
     Route: 048
     Dates: start: 2012
  4. ALFA-TOCOPHEROL NICOTINATE [Concomitant]
     Indication: Dyslipidaemia
     Dosage: 100 MG, TID
     Route: 048
     Dates: start: 2012, end: 20201119
  5. ALFA-TOCOPHEROL NICOTINATE [Concomitant]
     Dosage: 100 MG, TID
     Route: 048
     Dates: start: 20201123
  6. FOLIC ACID [Concomitant]
     Active Substance: FOLIC ACID
     Indication: Folate deficiency
     Dosage: 5 MG, TID
     Route: 048
     Dates: start: 2012
  7. ADEMPAS [Concomitant]
     Active Substance: RIOCIGUAT
     Indication: Raynaud^s phenomenon
     Dosage: 2.5 MG, TID
     Route: 048
  8. ADEMPAS [Concomitant]
     Active Substance: RIOCIGUAT
     Indication: Skin ulcer
  9. FEBUXOSTAT [Concomitant]
     Active Substance: FEBUXOSTAT
     Indication: Hyperuricaemia
     Dosage: 10 MG, QD
     Route: 048
     Dates: start: 2012
  10. MIYA-BM [Concomitant]
     Active Substance: CLOSTRIDIUM BUTYRICUM SPORES STRAIN M-55
     Indication: Diarrhoea
     Dosage: UNK UNK, TID
     Route: 065
     Dates: start: 2012
  11. NEXIUM [Concomitant]
     Active Substance: ESOMEPRAZOLE MAGNESIUM
     Indication: Gastric ulcer
     Dosage: 10 MG, QD
     Route: 048
     Dates: start: 2012
  12. SODIUM FERROUS CITRATE [Concomitant]
     Active Substance: SODIUM FERROUS CITRATE
     Indication: Iron deficiency anaemia
     Dosage: 50 MG, QD
     Route: 048
  13. BROTIZOLAM [Concomitant]
     Active Substance: BROTIZOLAM
     Indication: Insomnia
     Dosage: 0.25 MG, QD
     Route: 048
     Dates: start: 2012
  14. CILOSTAZOL [Suspect]
     Active Substance: CILOSTAZOL
     Indication: Raynaud^s phenomenon
     Dosage: 100 MG, QD
     Route: 048
     Dates: start: 2012, end: 20201119
  15. CILOSTAZOL [Suspect]
     Active Substance: CILOSTAZOL
     Indication: Skin ulcer
     Dosage: 100 MG, QD
     Route: 048
     Dates: start: 20201125

REACTIONS (5)
  - Haematoma muscle [Recovering/Resolving]
  - Clostridium difficile colitis [Fatal]
  - Dehydration [Fatal]
  - Colitis ischaemic [Recovered/Resolved]
  - Diverticulum intestinal haemorrhagic [Recovered/Resolved]

NARRATIVE: CASE EVENT DATE: 20200101
